FAERS Safety Report 10527331 (Version 1)
Quarter: 2014Q4

REPORT INFORMATION
  Report Type: Spontaneous
  Country: US (occurrence: None)
  Receive Date: 20141016
  Receipt Date: 20141016
  Transmission Date: 20150528
  Serious: Yes (Life-Threatening, Hospitalization, Disabling, Other)
  Sender: FDA-Public Use
  Company Number: None

PATIENT
  Age: 64 Year
  Sex: Female
  Weight: 65.32 kg

DRUGS (3)
  1. LORAZEPAM .5 MG TO 2 MG MYLAN [Suspect]
     Active Substance: LORAZEPAM
     Indication: SLEEP DISORDER
     Dosage: 1-2 MG/NIGHT
     Route: 048
     Dates: start: 20121001, end: 20140910
  2. LORAZEPAM .5 MG TO 2 MG MYLAN [Suspect]
     Active Substance: LORAZEPAM
     Indication: NAUSEA
     Dosage: 1-2 MG/NIGHT
     Route: 048
     Dates: start: 20121001, end: 20140910
  3. LORAZEPAM .5 MG TO 2 MG MYLAN [Suspect]
     Active Substance: LORAZEPAM
     Indication: BREAST CANCER
     Dosage: 1-2 MG/NIGHT
     Route: 048
     Dates: start: 20121001, end: 20140910

REACTIONS (6)
  - Drug withdrawal syndrome [None]
  - Drug prescribing error [None]
  - Lung disorder [None]
  - Drug interaction [None]
  - Feeling abnormal [None]
  - Influenza like illness [None]

NARRATIVE: CASE EVENT DATE: 20121001
